FAERS Safety Report 19761922 (Version 9)
Quarter: 2021Q4

REPORT INFORMATION
  Report Type: Report from Study
  Country: RU (occurrence: RU)
  Receive Date: 20210827
  Receipt Date: 20211110
  Transmission Date: 20220303
  Serious: Yes (Life-Threatening, Hospitalization, Other)
  Sender: FDA-Public Use
  Company Number: RU-CELGENE-RUS-20210806985

PATIENT
  Age: 45 Year
  Sex: Female

DRUGS (6)
  1. OZANIMOD [Suspect]
     Active Substance: OZANIMOD
     Indication: Relapsing multiple sclerosis
     Dosage: 1 CAPSULE
     Route: 048
     Dates: start: 20161114, end: 20161117
  2. OZANIMOD [Suspect]
     Active Substance: OZANIMOD
     Dosage: 2 CAPSULE
     Route: 048
     Dates: start: 20161118, end: 20161120
  3. OZANIMOD [Suspect]
     Active Substance: OZANIMOD
     Dosage: 1 CAPSULE
     Route: 048
     Dates: start: 20161121, end: 20210509
  4. OZANIMOD [Suspect]
     Active Substance: OZANIMOD
     Route: 048
     Dates: end: 20210822
  5. OZANIMOD [Suspect]
     Active Substance: OZANIMOD
     Route: 048
     Dates: end: 20210901
  6. Juno Bio-T [Concomitant]
     Indication: Contraception
     Route: 065
     Dates: start: 20171008

REACTIONS (1)
  - COVID-19 pneumonia [Recovered/Resolved]

NARRATIVE: CASE EVENT DATE: 20210822
